FAERS Safety Report 24151284 (Version 1)
Quarter: 2024Q3

REPORT INFORMATION
  Report Type: Spontaneous
  Country: US (occurrence: US)
  Receive Date: 20240730
  Receipt Date: 20240730
  Transmission Date: 20241016
  Serious: No
  Sender: GLENMARK
  Company Number: US-GLENMARK PHARMACEUTICALS-2024GMK088725

PATIENT

DRUGS (2)
  1. MUPIROCIN [Suspect]
     Active Substance: MUPIROCIN
     Indication: Product used for unknown indication
     Dosage: UNK (PUT ON LEGS)
     Route: 065
  2. THIAM [Concomitant]
     Indication: Product used for unknown indication
     Dosage: UNK (PUT ON LEGS)
     Route: 065

REACTIONS (4)
  - Application site exfoliation [Recovered/Resolved]
  - Application site discolouration [Recovered/Resolved]
  - Application site swelling [Recovered/Resolved]
  - Application site pain [Recovered/Resolved]
